FAERS Safety Report 19449122 (Version 1)
Quarter: 2021Q2

REPORT INFORMATION
  Report Type: Spontaneous
  Country: US (occurrence: US)
  Receive Date: 20210622
  Receipt Date: 20210622
  Transmission Date: 20210717
  Serious: No
  Sender: FDA-Public Use
  Company Number: US-BAUSCH-BL-2021-016537

PATIENT
  Sex: Female

DRUGS (1)
  1. DESMOPRESSIN ACETATE NASAL SOLUTION 0.01% [Suspect]
     Active Substance: DESMOPRESSIN ACETATE
     Indication: PRODUCT USED FOR UNKNOWN INDICATION
     Dosage: HAS BEEN USING THE PRODUCT FOR 1.5 YEARS
     Route: 047

REACTIONS (4)
  - Swollen tongue [Not Recovered/Not Resolved]
  - Dry eye [Not Recovered/Not Resolved]
  - Dry skin [Not Recovered/Not Resolved]
  - Tongue dry [Not Recovered/Not Resolved]

NARRATIVE: CASE EVENT DATE: 2021
